FAERS Safety Report 9224180 (Version 3)
Quarter: 2014Q1

REPORT INFORMATION
  Report Type: Spontaneous
  Country: US (occurrence: US)
  Receive Date: 20130411
  Receipt Date: 20140116
  Transmission Date: 20141002
  Serious: No
  Sender: FDA-Public Use
  Company Number: US-PFIZER INC-2013113763

PATIENT
  Age: 45 Year
  Sex: Female
  Weight: 97.51 kg

DRUGS (9)
  1. LYRICA [Suspect]
     Indication: FIBROMYALGIA
     Dosage: 150 MG, 3X/DAY
     Route: 048
     Dates: start: 2011, end: 20130721
  2. LYRICA [Suspect]
     Dosage: 150 MG, 3X/DAY
     Route: 048
     Dates: end: 201312
  3. TRAZODONE [Concomitant]
     Indication: BIPOLAR DISORDER
     Dosage: UNK
  4. TRAZODONE [Concomitant]
     Indication: DEPRESSION
     Dosage: UNK
  5. XANAX [Concomitant]
     Dosage: UNK, 2X/DAY
  6. XANAX [Concomitant]
     Dosage: UNK
  7. ABILIFY [Concomitant]
     Indication: DEPRESSION
     Dosage: UNK, 1X/DAY
  8. ABILIFY [Concomitant]
     Dosage: UNK
  9. AMITRIPTYLINE [Concomitant]
     Indication: DEPRESSION
     Dosage: UNK

REACTIONS (6)
  - Malaise [Unknown]
  - Malaise [Not Recovered/Not Resolved]
  - Feeling abnormal [Not Recovered/Not Resolved]
  - Pain [Not Recovered/Not Resolved]
  - Pain in extremity [Not Recovered/Not Resolved]
  - Back pain [Not Recovered/Not Resolved]
